FAERS Safety Report 14592090 (Version 1)
Quarter: 2018Q1

REPORT INFORMATION
  Report Type: Spontaneous
  Country: US (occurrence: US)
  Receive Date: 20180302
  Receipt Date: 20180302
  Transmission Date: 20180509
  Serious: Yes (Other)
  Sender: FDA-Public Use
  Company Number: US-NOVOPROD-542741

PATIENT
  Age: 50 Year
  Sex: Female
  Weight: 93.88 kg

DRUGS (3)
  1. VICTOZA [Suspect]
     Active Substance: LIRAGLUTIDE
     Indication: OFF LABEL USE
  2. VICTOZA [Suspect]
     Active Substance: LIRAGLUTIDE
     Indication: BODY MASS INDEX INCREASED
  3. VICTOZA [Suspect]
     Active Substance: LIRAGLUTIDE
     Indication: GLUCOSE TOLERANCE IMPAIRED
     Dosage: 0.6 MG, QD
     Route: 058
     Dates: start: 20170208, end: 20170215

REACTIONS (5)
  - Nausea [Recovered/Resolved]
  - Jaundice [Recovering/Resolving]
  - Off label use [Recovered/Resolved]
  - Hepatic enzyme increased [Recovering/Resolving]
  - Condition aggravated [Recovering/Resolving]

NARRATIVE: CASE EVENT DATE: 201702
